FAERS Safety Report 24881954 (Version 2)
Quarter: 2025Q1

REPORT INFORMATION
  Report Type: Spontaneous
  Country: US (occurrence: US)
  Receive Date: 20250124
  Receipt Date: 20250129
  Transmission Date: 20250409
  Serious: No
  Sender: ELI LILLY AND COMPANY
  Company Number: US-ELI_LILLY_AND_COMPANY-US202501014971

PATIENT
  Age: 57 Year
  Sex: Female

DRUGS (1)
  1. VERZENIO [Suspect]
     Active Substance: ABEMACICLIB
     Indication: Metastases to bone
     Dosage: 100 MG, BID
     Route: 048

REACTIONS (5)
  - Faeces discoloured [Unknown]
  - Dizziness [Unknown]
  - Off label use [Unknown]
  - Diarrhoea [Unknown]
  - Fatigue [Unknown]
